FAERS Safety Report 4985111-4 (Version None)
Quarter: 2006Q2

REPORT INFORMATION
  Report Type: 
  Country: None (occurrence: None)
  Receive Date: 20060427
  Receipt Date: 20060418
  Transmission Date: 20061013
  Serious: Yes (Hospitalization)
  Sender: FDA-Public Use
  Company Number: AU-ABBOTT-06P-008-0331168-00

PATIENT
  Sex: Female
  Weight: 95 kg

DRUGS (1)
  1. REDUCTIL [Suspect]
     Indication: OBESITY
     Route: 048

REACTIONS (3)
  - HALLUCINATION, AUDITORY [None]
  - PSYCHOTIC DISORDER [None]
  - SPEECH DISORDER [None]
